FAERS Safety Report 13532937 (Version 2)
Quarter: 2017Q3

REPORT INFORMATION
  Report Type: Spontaneous
  Country: US (occurrence: US)
  Receive Date: 20170510
  Receipt Date: 20170717
  Transmission Date: 20171127
  Serious: No
  Sender: FDA-Public Use
  Company Number: US-ASTRAZENECA-2017SE47587

PATIENT
  Age: 25880 Day
  Sex: Female
  Weight: 85.3 kg

DRUGS (2)
  1. SYMBICORT [Suspect]
     Active Substance: BUDESONIDE\FORMOTEROL FUMARATE DIHYDRATE
     Indication: ASTHMA
     Dosage: 80/4.5MCG ONE PUFF DAILY
     Route: 055
     Dates: start: 20170214
  2. SYMBICORT [Suspect]
     Active Substance: BUDESONIDE\FORMOTEROL FUMARATE DIHYDRATE
     Indication: ASTHMA
     Dosage: 80/4.5MCG ONE PUFF DAILY
     Route: 055
     Dates: start: 2007

REACTIONS (5)
  - Drug dose omission [Unknown]
  - Device failure [Unknown]
  - Product use issue [Unknown]
  - Intentional device misuse [Unknown]
  - Infection [Unknown]

NARRATIVE: CASE EVENT DATE: 20170501
